FAERS Safety Report 4283698-0 (Version None)
Quarter: 2004Q1

REPORT INFORMATION
  Report Type: 
  Country: None (occurrence: None)
  Receive Date: 20040130
  Receipt Date: 20040130
  Transmission Date: 20041129
  Serious: Yes (Disabling)
  Sender: FDA-Public Use
  Company Number: None

PATIENT
  Age: 36 Year
  Sex: Female
  Weight: 63.5036 kg

DRUGS (1)
  1. TOPAMAX [Suspect]
     Indication: PAIN
     Dosage: 75 MG PO DINNER, 100 MG PO QHS
     Route: 048

REACTIONS (3)
  - OPEN ANGLE GLAUCOMA [None]
  - VISION BLURRED [None]
  - VISUAL DISTURBANCE [None]
